FAERS Safety Report 5923573-6 (Version None)
Quarter: 2008Q4

REPORT INFORMATION
  Report Type: 
  Country: None (occurrence: None)
  Receive Date: 20081020
  Receipt Date: 20081014
  Transmission Date: 20090506
  Serious: Yes (Life-Threatening)
  Sender: FDA-Public Use
  Company Number: PHHY2008CN22743

PATIENT
  Age: 26 Year
  Sex: Male

DRUGS (5)
  1. SEBIVO [Suspect]
     Indication: HEPATITIS B
     Dosage: 600 MG, QD
     Route: 048
     Dates: start: 20071001, end: 20080926
  2. ENTECAVIR [Concomitant]
  3. CROCI STIGMA [Concomitant]
  4. FLUID/ELECTROLYTE REPLACEMENT THERAPY [Concomitant]
  5. DIURETICS [Concomitant]

REACTIONS (44)
  - ACUTE RESPIRATORY FAILURE [None]
  - ALANINE AMINOTRANSFERASE INCREASED [None]
  - ANOREXIA [None]
  - ANURIA [None]
  - ARRHYTHMIA [None]
  - ASPARTATE AMINOTRANSFERASE INCREASED [None]
  - ASTHMA [None]
  - BLOOD CREATINE PHOSPHOKINASE INCREASED [None]
  - BLOOD CREATINE PHOSPHOKINASE MB INCREASED [None]
  - BLOOD CREATININE INCREASED [None]
  - BLOOD LACTATE DEHYDROGENASE INCREASED [None]
  - BLOOD LACTIC ACID INCREASED [None]
  - BLOOD UREA INCREASED [None]
  - CHEST DISCOMFORT [None]
  - CIRCULATORY COLLAPSE [None]
  - CONSTIPATION [None]
  - DYSPNOEA [None]
  - FATIGUE [None]
  - HAEMOGLOBIN INCREASED [None]
  - HYPERLIPIDAEMIA [None]
  - HYPOTENSION [None]
  - JAUNDICE [None]
  - LOSS OF CONSCIOUSNESS [None]
  - LUNG INFECTION [None]
  - METABOLIC ACIDOSIS [None]
  - MOOD ALTERED [None]
  - MULTI-ORGAN FAILURE [None]
  - MUSCLE DISORDER [None]
  - MYALGIA [None]
  - MYOGLOBIN BLOOD INCREASED [None]
  - MYOPATHY [None]
  - NAUSEA [None]
  - NEUTROPHIL COUNT INCREASED [None]
  - PAIN [None]
  - PAIN IN EXTREMITY [None]
  - PALPITATIONS [None]
  - PLATELET COUNT INCREASED [None]
  - RED BLOOD CELL COUNT DECREASED [None]
  - RENAL FAILURE ACUTE [None]
  - RHABDOMYOLYSIS [None]
  - SINUS TACHYCARDIA [None]
  - SOMNOLENCE [None]
  - URINARY RETENTION [None]
  - WHITE BLOOD CELL COUNT INCREASED [None]
